FAERS Safety Report 15283236 (Version 1)
Quarter: 2018Q3

REPORT INFORMATION
  Report Type: Spontaneous
  Country: US (occurrence: US)
  Receive Date: 20180731
  Receipt Date: 20180731
  Transmission Date: 20181010
  Serious: Yes (Disabling)
  Sender: FDA-Public Use
  Company Number: None

PATIENT
  Age: 58 Year
  Sex: Female
  Weight: 70.2 kg

DRUGS (2)
  1. CITALOPRAM [Suspect]
     Active Substance: CITALOPRAM HYDROBROMIDE
     Indication: DEPRESSION
     Dosage: ?          QUANTITY:1 TABLET(S);?
     Route: 048
     Dates: start: 20180607, end: 20180721
  2. CITALOPRAM [Suspect]
     Active Substance: CITALOPRAM HYDROBROMIDE
     Indication: ANXIETY
     Dosage: ?          QUANTITY:1 TABLET(S);?
     Route: 048
     Dates: start: 20180607, end: 20180721

REACTIONS (9)
  - Eye pain [None]
  - Vision blurred [None]
  - Visual impairment [None]
  - Ocular hyperaemia [None]
  - Intraocular pressure increased [None]
  - Corneal abrasion [None]
  - Eye swelling [None]
  - Dry eye [None]
  - Glaucoma [None]

NARRATIVE: CASE EVENT DATE: 20180710
